FAERS Safety Report 4954401-3 (Version None)
Quarter: 2006Q1

REPORT INFORMATION
  Report Type: 
  Country: None (occurrence: None)
  Receive Date: 20060322
  Receipt Date: 20060308
  Transmission Date: 20060701
  Serious: Yes (Death)
  Sender: FDA-Public Use
  Company Number: 2006P1000122

PATIENT
  Age: 68 Year
  Sex: Male
  Weight: 90 kg

DRUGS (10)
  1. RETEPLASE (RETAVASE) [Suspect]
     Indication: ACUTE MYOCARDIAL INFARCTION
     Dosage: 5 IU; 1X; IVBOL
     Route: 040
     Dates: start: 20060220, end: 20060220
  2. RETEPLASE (RETAVASE) [Suspect]
     Indication: ACUTE MYOCARDIAL INFARCTION
     Dosage: 5 IU; 1X; IVBOL
     Route: 040
     Dates: start: 20060220, end: 20060220
  3. ABCIXIMAB (ABCIXIMAB) [Suspect]
     Indication: ACUTE MYOCARDIAL INFARCTION
     Dosage: 2 + 4 ML; 1X; IVBOL - SEE IMAGE
     Route: 040
     Dates: start: 20060220, end: 20060220
  4. ABCIXIMAB (ABCIXIMAB) [Suspect]
     Indication: ACUTE MYOCARDIAL INFARCTION
     Dosage: 2 + 4 ML; 1X; IVBOL - SEE IMAGE
     Route: 040
     Dates: start: 20060220, end: 20060220
  5. HEPARIN [Concomitant]
  6. ACETYLSALICYLIC ACID SRT [Concomitant]
  7. LIDOCAINE [Concomitant]
  8. AMIODARONE HCL [Concomitant]
  9. MIDAZOLAM HCL [Concomitant]
  10. PANTOPRAZOLE [Concomitant]

REACTIONS (7)
  - ATRIOVENTRICULAR BLOCK COMPLETE [None]
  - BLOOD PRESSURE DECREASED [None]
  - CARDIAC ARREST [None]
  - CARDIAC TAMPONADE [None]
  - COMPLICATION OF DEVICE INSERTION [None]
  - MYOCARDIAL RUPTURE [None]
  - PERICARDIAL HAEMORRHAGE [None]
